FAERS Safety Report 17082198 (Version 11)
Quarter: 2024Q2

REPORT INFORMATION
  Report Type: Report from Study
  Country: CA (occurrence: CA)
  Receive Date: 20191127
  Receipt Date: 20240621
  Transmission Date: 20240716
  Serious: Yes (Hospitalization, Other)
  Sender: FDA-Public Use
  Company Number: CA-NOVARTISPH-PHHY2019CA030053

PATIENT
  Age: 66 Year
  Sex: Female

DRUGS (11)
  1. KISQALI [Suspect]
     Active Substance: RIBOCICLIB
     Indication: Breast cancer metastatic
     Dosage: 400 MG, QD (400 MG ONCE DAILY FOR 21/28 DAYS, FOLLOWED BY 7 DAYS OFF)
     Route: 048
     Dates: start: 20181212, end: 20220618
  2. KISQALI [Suspect]
     Active Substance: RIBOCICLIB
     Dosage: 400 MG
     Route: 048
     Dates: start: 20190201
  3. KISQALI [Suspect]
     Active Substance: RIBOCICLIB
     Dosage: 400 MG, QD (400 MG ONCE DAILY FOR 21/28 DAYS, FOLLOWED BY 7 DAYS OFF)
     Route: 048
     Dates: start: 20220622
  4. KISQALI [Suspect]
     Active Substance: RIBOCICLIB
     Dosage: UNK
     Route: 048
  5. KISQALI [Suspect]
     Active Substance: RIBOCICLIB
     Dosage: 400 MG, QD (FOR DAYS 1-21)
     Route: 048
     Dates: start: 20240108
  6. KISQALI [Suspect]
     Active Substance: RIBOCICLIB
     Dosage: 400 MG
     Route: 048
  7. LETROZOLE [Suspect]
     Active Substance: LETROZOLE
     Indication: Product used for unknown indication
     Dosage: UNK
     Route: 065
  8. XARELTO [Concomitant]
     Active Substance: RIVAROXABAN
     Indication: Anticoagulant therapy
     Dosage: UNK
     Route: 065
  9. XARELTO [Concomitant]
     Active Substance: RIVAROXABAN
     Dosage: UNK
     Route: 065
  10. ELIQUIS [Concomitant]
     Active Substance: APIXABAN
     Indication: Anticoagulant therapy
     Dosage: UNK
     Route: 065
  11. ELIQUIS [Concomitant]
     Active Substance: APIXABAN
     Indication: Anticoagulant therapy
     Dosage: UNK
     Route: 065

REACTIONS (19)
  - Gastrointestinal haemorrhage [Unknown]
  - Pulmonary embolism [Unknown]
  - Deep vein thrombosis [Unknown]
  - Influenza [Unknown]
  - Dysphagia [Unknown]
  - Product use complaint [Unknown]
  - Alanine aminotransferase increased [Unknown]
  - Lower respiratory tract infection [Unknown]
  - Full blood count decreased [Unknown]
  - COVID-19 [Unknown]
  - Hyperhidrosis [Unknown]
  - Malaise [Unknown]
  - Emotional disorder [Unknown]
  - Sputum discoloured [Unknown]
  - Pruritus [Unknown]
  - Peripheral swelling [Unknown]
  - Neutrophil count decreased [Unknown]
  - Respiratory tract infection [Unknown]
  - Oropharyngeal pain [Unknown]

NARRATIVE: CASE EVENT DATE: 20220601
